FAERS Safety Report 4953999-9 (Version None)
Quarter: 2006Q1

REPORT INFORMATION
  Report Type: 
  Country: None (occurrence: None)
  Receive Date: 20060321
  Receipt Date: 20060315
  Transmission Date: 20060701
  Serious: Yes (Other)
  Sender: FDA-Public Use
  Company Number: HQWYE013327FEB06

PATIENT
  Age: 48 Year
  Sex: Male

DRUGS (17)
  1. TIGECYCLINE (TIGECYCLINE, INJECTION) [Suspect]
     Indication: PNEUMONIA
     Dosage: 100MG LOADING DOSE THEN 50MG EVERY 12 HOURS INTRAVENOUS
     Route: 042
     Dates: start: 20060215, end: 20060222
  2. OXYGEN (OXYGEN) [Concomitant]
  3. IPRATROPIUM BROMIDE [Concomitant]
  4. SALBUTAMOL (SALBUTAMOL) [Concomitant]
  5. NORADRENALINE (NORADRENALINE) [Concomitant]
  6. DOPAMINE HCL [Concomitant]
  7. MIDAZOLAM HCL [Concomitant]
  8. PROPOFOL [Concomitant]
  9. MORPHINE [Concomitant]
  10. HYDROCORTISONE [Concomitant]
  11. AMIKACIN [Concomitant]
  12. XIGRIS [Concomitant]
  13. ENOXAPARIN SODIUM [Concomitant]
  14. SODIUM BICARBONATE IN PLASTIC CONTAINER [Concomitant]
  15. PHYTONADIONE [Concomitant]
  16. METOCLOPRAMIDE [Concomitant]
  17. PULMOCARE (MINERALS NOS/VITAMINS NOS) [Concomitant]

REACTIONS (1)
  - CYTOLYTIC HEPATITIS [None]
